FAERS Safety Report 7857876-5 (Version None)
Quarter: 2011Q4

REPORT INFORMATION
  Report Type: 
  Country: None (occurrence: None)
  Receive Date: 20111027
  Receipt Date: 20110221
  Transmission Date: 20120403
  Serious: No
  Sender: FDA-Public Use
  Company Number: US-BAYER-2011-007036

PATIENT
  Sex: Female
  Weight: 49.887 kg

DRUGS (7)
  1. EVISTA [Concomitant]
     Dosage: UNK
     Route: 048
  2. METHIMAZOLE [Concomitant]
     Dosage: UNK
     Route: 048
  3. ALEVE (CAPLET) [Suspect]
     Dosage: COUNT BOTTLE UNKNOWN
     Route: 048
     Dates: start: 20110101, end: 20110220
  4. UNCODEABLE ^UNCLASSIFIABLE^ [Concomitant]
     Dosage: UNK
     Route: 047
  5. ALEVE (CAPLET) [Suspect]
     Indication: MYALGIA
  6. ALEVE (CAPLET) [Suspect]
     Indication: ARTHRITIS
  7. MULTI-VITAMIN [Concomitant]

REACTIONS (3)
  - FAECES DISCOLOURED [None]
  - MYALGIA [None]
  - ARTHRITIS [None]
